FAERS Safety Report 6561348-8 (Version None)
Quarter: 2010Q1

REPORT INFORMATION
  Report Type: 
  Country: None (occurrence: None)
  Receive Date: 20100130
  Receipt Date: 20091013
  Transmission Date: 20100710
  Serious: No
  Sender: FDA-Public Use
  Company Number: US-ABBOTT-09P-163-0603491-00

PATIENT
  Sex: Male
  Weight: 72.64 kg

DRUGS (4)
  1. HUMIRA [Suspect]
     Indication: PSORIATIC ARTHROPATHY
     Dates: start: 20071104, end: 20080408
  2. HUMIRA [Suspect]
     Dates: start: 20080501, end: 20080728
  3. HUMIRA [Suspect]
     Dates: start: 20081204, end: 20090322
  4. HUMIRA [Suspect]
     Dates: start: 20090812

REACTIONS (6)
  - ARTHRALGIA [None]
  - CELLULITIS [None]
  - IMPAIRED HEALING [None]
  - OSTEOARTHRITIS [None]
  - SUTURE RELATED COMPLICATION [None]
  - WOUND DRAINAGE [None]
